FAERS Safety Report 8057632-1 (Version None)
Quarter: 2012Q1

REPORT INFORMATION
  Report Type: 
  Country: None (occurrence: None)
  Receive Date: 20120120
  Receipt Date: 20120111
  Transmission Date: 20120608
  Serious: No
  Sender: FDA-Public Use
  Company Number: US-BIOGENIDEC-2011BI039720

PATIENT
  Sex: Female

DRUGS (4)
  1. ACETAMINOPHEN [Concomitant]
     Indication: PREMEDICATION
  2. TYSABRI [Suspect]
     Indication: MULTIPLE SCLEROSIS
     Route: 042
     Dates: start: 20100623
  3. 4-AP COMPOUNDED VERSION OF AMPYRA [Concomitant]
     Indication: MULTIPLE SCLEROSIS
     Dates: start: 20110701
  4. BENADRYL [Concomitant]
     Indication: PREMEDICATION

REACTIONS (8)
  - ARTHRITIS [None]
  - HAEMORRHOIDS [None]
  - HEADACHE [None]
  - NAIL DISCOLOURATION [None]
  - FOOT FRACTURE [None]
  - ASTHENIA [None]
  - FALL [None]
  - HAEMATOCHEZIA [None]
